FAERS Safety Report 8747734 (Version 2)
Quarter: 2012Q4

REPORT INFORMATION
  Report Type: 
  Country: GB (occurrence: GB)
  Receive Date: 20120827
  Receipt Date: 20121022
  Transmission Date: 20130627
  Serious: Yes (Other)
  Sender: FDA-Public Use
  Company Number: PHHO2012GB012367

PATIENT
  Sex: Female

DRUGS (1)
  1. CGP 57148B [Suspect]
     Dosage: UNK
     Dates: start: 20060427

REACTIONS (1)
  - Lipase increased [Unknown]
